FAERS Safety Report 7419631-X (Version None)
Quarter: 2011Q2

REPORT INFORMATION
  Report Type: 
  Country: None (occurrence: None)
  Receive Date: 20110418
  Receipt Date: 20110412
  Transmission Date: 20111010
  Serious: Yes (Other)
  Sender: FDA-Public Use
  Company Number: CA-US-EMD SERONO, INC.-7025315

PATIENT
  Sex: Female

DRUGS (24)
  1. REBIF [Suspect]
     Indication: RELAPSING-REMITTING MULTIPLE SCLEROSIS
     Route: 058
     Dates: start: 20101021
  2. TIVEA-A [Concomitant]
     Indication: PRECANCEROUS SKIN LESION
  3. SPIRONOLACTONE [Concomitant]
  4. VIT C WITH ROSE HIPS (VITAMIN C WITH ROSE HIPS) [Concomitant]
  5. UROMOL HC [Concomitant]
     Indication: DRY SKIN
  6. ASPIRIN [Concomitant]
     Dosage: LOW DOSE
  7. MULTI-VITAMINS [Concomitant]
  8. SPIRONOLACTONE/HYDROCHLOROTHIAZIDE [Concomitant]
  9. NEXIUM [Concomitant]
  10. NEXIUM [Concomitant]
  11. NASONEX [Concomitant]
     Route: 045
  12. GLUCOSAMINE SULFATE [Concomitant]
  13. LORAZEPAM [Concomitant]
  14. SYMBICORT [Concomitant]
     Dosage: 2 PUFFS
  15. ELECOMBE [Concomitant]
     Indication: EAR DISORDER
  16. IBUPROFEN [Concomitant]
     Indication: PREMEDICATION
  17. VIT D (VITAMIN D) [Concomitant]
  18. TRIAZADONE (TRAZODONE) [Concomitant]
  19. HYDROCHLOROTHIAZIDE [Concomitant]
  20. REBIF [Suspect]
  21. ATROVENT [Concomitant]
     Dosage: 2-4 PUFFS
  22. TEMAZETAM [Concomitant]
  23. VIT B COMPLEX [Concomitant]
  24. OMEGA 3 WILD SALMON (OMEGA 3) [Concomitant]

REACTIONS (20)
  - MUSCLE SPASMS [None]
  - BALANCE DISORDER [None]
  - INJECTION SITE ERYTHEMA [None]
  - POLYP COLORECTAL [None]
  - NECK PAIN [None]
  - RESTLESSNESS [None]
  - NAUSEA [None]
  - BACK PAIN [None]
  - MUSCULOSKELETAL STIFFNESS [None]
  - ASTHENIA [None]
  - ABDOMINAL PAIN [None]
  - FATIGUE [None]
  - DEPRESSION [None]
  - HEPATIC ENZYME INCREASED [None]
  - INFLUENZA LIKE ILLNESS [None]
  - MUSCULAR WEAKNESS [None]
  - WEIGHT DECREASED [None]
  - DIABETES MELLITUS [None]
  - ANXIETY [None]
  - GASTRIC DISORDER [None]
